FAERS Safety Report 24966608 (Version 1)
Quarter: 2025Q1

REPORT INFORMATION
  Report Type: Spontaneous
  Country: FR (occurrence: FR)
  Receive Date: 20250213
  Receipt Date: 20250213
  Transmission Date: 20250408
  Serious: Yes (Hospitalization, Other)
  Sender: ASTELLAS
  Company Number: FR-ASTELLAS-2025-AER-007885

PATIENT
  Sex: Male

DRUGS (5)
  1. TACROLIMUS [Interacting]
     Active Substance: TACROLIMUS
     Indication: Pancreas transplant
     Dosage: IMMEDIATE-RELEASE (TARGET TROUGH BLOOD CONCENTRATION: 5.0^-6.0 ?G/L)
     Route: 065
     Dates: start: 2013
  2. TACROLIMUS [Interacting]
     Active Substance: TACROLIMUS
     Dosage: REINTRODUCED AT THE INITIAL DOSE
     Route: 065
  3. VEKLURY [Interacting]
     Active Substance: REMDESIVIR
     Indication: COVID-19 pneumonia
     Route: 065
  4. PAXLOVID [Interacting]
     Active Substance: NIRMATRELVIR\RITONAVIR
     Indication: COVID-19 pneumonia
     Route: 065
  5. MYCOPHENOLATE MOFETIL [Concomitant]
     Active Substance: MYCOPHENOLATE MOFETIL
     Indication: Pancreas transplant
     Dosage: TARGET TROUGH PLASMA CONCENTRATION: 2.5 MG/L
     Route: 065
     Dates: start: 2013

REACTIONS (9)
  - Thrombotic microangiopathy [Unknown]
  - COVID-19 pneumonia [Recovering/Resolving]
  - Neurotoxicity [Unknown]
  - Renal impairment [Recovering/Resolving]
  - Haematotoxicity [Recovering/Resolving]
  - Drug interaction [Unknown]
  - Overdose [Unknown]
  - Hypertensive crisis [Unknown]
  - Off label use [Unknown]

NARRATIVE: CASE EVENT DATE: 20130101
